FAERS Safety Report 6819281-X (Version None)
Quarter: 2010Q3

REPORT INFORMATION
  Report Type: 
  Country: None (occurrence: None)
  Receive Date: 20100707
  Receipt Date: 20100624
  Transmission Date: 20110219
  Serious: Yes (Other)
  Sender: FDA-Public Use
  Company Number: US-ELI_LILLY_AND_COMPANY-US201006006892

PATIENT
  Sex: Female

DRUGS (17)
  1. FORTEO [Suspect]
     Indication: OSTEOPOROSIS
     Dosage: 20 UG, DAILY (1/D)
     Dates: start: 20100101
  2. HYDRALAZINE HCL [Concomitant]
     Dosage: 50 MG, 3/D
  3. WARFARIN [Concomitant]
     Dosage: 5 MG, 5/W
  4. WARFARIN [Concomitant]
     Dosage: 2.5 MG, 2/W
  5. FUROSEMIDE [Concomitant]
     Dosage: 40 MG, 2/D
  6. NADOLOL [Concomitant]
     Dosage: 40 MG, DAILY (1/D)
  7. ENALAPRIL MALEATE [Concomitant]
     Dosage: 10 MG, 2/D
  8. SYNTHROID [Concomitant]
     Dosage: 0.088 MG, DAILY (1/D)
  9. AMIODARONE HCL [Concomitant]
     Dosage: 200 MG, DAILY (1/D)
  10. LOSARTAN POSTASSIUM [Concomitant]
     Dosage: 100 MG, DAILY (1/D)
  11. VITAMIN D [Concomitant]
     Dosage: 50000 IU, WEEKLY (1/W)
  12. IRON [Concomitant]
     Dosage: 65 MG, DAILY (1/D)
  13. CALCIUM CARBONATE [Concomitant]
     Dosage: 500 MG, 2/D
  14. POTASSIUM CHLORIDE [Concomitant]
     Dosage: 20 MEQ, DAILY (1/D)
  15. ASPIRIN [Concomitant]
     Dosage: 81 MG, UNK
  16. CATAPRES /00171101/ [Concomitant]
  17. CLONAZEPAM [Concomitant]
     Dosage: 0.5 MG, DAILY (1/D)

REACTIONS (10)
  - ARTHRALGIA [None]
  - EYE HAEMORRHAGE [None]
  - MACULAR DEGENERATION [None]
  - MOVEMENT DISORDER [None]
  - MUSCLE SPASMS [None]
  - MUSCULAR WEAKNESS [None]
  - PAIN IN EXTREMITY [None]
  - THROMBOSIS [None]
  - VISUAL IMPAIRMENT [None]
  - VITAMIN D DECREASED [None]
